FAERS Safety Report 25074628 (Version 1)
Quarter: 2025Q1

REPORT INFORMATION
  Report Type: Spontaneous
  Country: US (occurrence: US)
  Receive Date: 20250313
  Receipt Date: 20250313
  Transmission Date: 20250408
  Serious: Yes (Other)
  Sender: ALEXION PHARMACEUTICALS
  Company Number: US-AstraZeneca-CH-00823099A

PATIENT

DRUGS (1)
  1. FARXIGA [Suspect]
     Active Substance: DAPAGLIFLOZIN PROPANEDIOL
     Route: 065

REACTIONS (14)
  - Genital discolouration [Unknown]
  - Penile swelling [Unknown]
  - Abdominal pain [Unknown]
  - Urinary incontinence [Unknown]
  - Orthostatic hypotension [Unknown]
  - Dehydration [Unknown]
  - Cardiac disorder [Unknown]
  - Pain [Unknown]
  - Dyspnoea [Unknown]
  - Fungal infection [Unknown]
  - Fall [Unknown]
  - Head injury [Unknown]
  - Limb injury [Unknown]
  - Loss of consciousness [Unknown]
